FAERS Safety Report 9357449 (Version 2)
Quarter: 2013Q3

REPORT INFORMATION
  Report Type: Spontaneous
  Country: FR (occurrence: FR)
  Receive Date: 20130620
  Receipt Date: 20130705
  Transmission Date: 20140515
  Serious: Yes (Hospitalization)
  Sender: FDA-Public Use
  Company Number: PHHY2013FR061104

PATIENT
  Age: 41 Year
  Sex: Male

DRUGS (4)
  1. RIAMET [Suspect]
     Indication: MALARIA
     Dosage: 4 DF, BID
     Route: 048
     Dates: start: 20130506, end: 20130508
  2. ARTESUNATE [Suspect]
     Indication: MALARIA
     Dosage: 200 MG, QD
     Route: 042
     Dates: start: 20130503
  3. ARTESUNATE [Suspect]
     Dosage: 400 MG, (200 MG AT 6 AM AND 200 MG AT 6PM)
     Route: 042
     Dates: start: 20130504
  4. ARTESUNATE [Suspect]
     Dosage: 200 MG, QD
     Route: 042
     Dates: start: 20130505, end: 20130505

REACTIONS (1)
  - Haemolytic anaemia [Not Recovered/Not Resolved]
